FAERS Safety Report 11944706 (Version 1)
Quarter: 2016Q1

REPORT INFORMATION
  Report Type: Spontaneous
  Country: AU (occurrence: AU)
  Receive Date: 20160125
  Receipt Date: 20160125
  Transmission Date: 20160526
  Serious: Yes (Hospitalization)
  Sender: FDA-Public Use
  Company Number: AU-IGSA-IG003842

PATIENT
  Age: 70 Year
  Sex: Female
  Weight: 58 kg

DRUGS (5)
  1. FLEBOGAMMA DIF [Suspect]
     Active Substance: HUMAN IMMUNOGLOBULIN G
     Indication: NEUROPATHY PERIPHERAL
     Route: 042
     Dates: start: 20160109, end: 20160114
  2. SOTALOL. [Concomitant]
     Active Substance: SOTALOL
  3. PREGABALIN. [Concomitant]
     Active Substance: PREGABALIN
  4. FLEBOGAMMA DIF [Suspect]
     Active Substance: HUMAN IMMUNOGLOBULIN G
     Indication: NEUROPATHY PERIPHERAL
     Route: 042
     Dates: start: 20160109, end: 20160114
  5. DABIGATRAN [Concomitant]
     Active Substance: DABIGATRAN

REACTIONS (6)
  - Hyperhidrosis [Recovered/Resolved]
  - Nausea [Recovered/Resolved]
  - Atrial fibrillation [Recovered/Resolved]
  - Dizziness [Recovered/Resolved]
  - Diarrhoea [Recovered/Resolved]
  - Headache [Recovered/Resolved]

NARRATIVE: CASE EVENT DATE: 20160110
